FAERS Safety Report 8588886-0 (Version None)
Quarter: 2012Q3

REPORT INFORMATION
  Report Type: 
  Country: None (occurrence: None)
  Receive Date: 20120813
  Receipt Date: 20120808
  Transmission Date: 20120928
  Serious: Yes (Other)
  Sender: FDA-Public Use
  Company Number: US-PFIZER INC-2012194197

PATIENT
  Age: 35 Year
  Sex: Female
  Weight: 65.8 kg

DRUGS (3)
  1. PRISTIQ [Suspect]
     Indication: PREMENSTRUAL SYNDROME
     Dosage: 50 MG, DAILY
     Route: 048
     Dates: end: 20120701
  2. PRISTIQ [Suspect]
     Indication: MOOD SWINGS
     Dosage: SPLITTING THE TABLETS INTO HALF, THEN QUARTERS, DAILY
     Route: 048
     Dates: start: 20120701
  3. PRISTIQ [Suspect]
     Indication: DEPRESSION

REACTIONS (3)
  - SUICIDAL BEHAVIOUR [None]
  - FATIGUE [None]
  - DEPRESSION [None]
